FAERS Safety Report 18194126 (Version 1)
Quarter: 2020Q3

REPORT INFORMATION
  Report Type: Spontaneous
  Country: US (occurrence: US)
  Receive Date: 20200825
  Receipt Date: 20200825
  Transmission Date: 20201103
  Serious: Yes (Other)
  Sender: FDA-Public Use
  Company Number: US-JNJFOC-20200823949

PATIENT
  Age: 8 Decade
  Sex: Female

DRUGS (6)
  1. DEXAMETHASONE. [Concomitant]
     Active Substance: DEXAMETHASONE
  2. XARELTO [Suspect]
     Active Substance: RIVAROXABAN
     Indication: PRODUCT USED FOR UNKNOWN INDICATION
     Route: 048
  3. IBUPROFEN. [Suspect]
     Active Substance: IBUPROFEN
  4. ELIQUIS [Suspect]
     Active Substance: APIXABAN
     Indication: DEEP VEIN THROMBOSIS
  5. REVLIMID [Suspect]
     Active Substance: LENALIDOMIDE
     Dosage: 5 MG FROM APR/2014 TO UNSPECIFIED DATE, 10 MG DAILY FROM JUL/2015 TO UNSPECIFIED DATE, 5 MG FROM 15/
     Route: 048
     Dates: start: 201310
  6. DARZALEX [Concomitant]
     Active Substance: DARATUMUMAB

REACTIONS (8)
  - Tinnitus [Unknown]
  - Bronchitis [Unknown]
  - Deep vein thrombosis [Unknown]
  - Upper limb fracture [Recovering/Resolving]
  - Ear discomfort [Recovered/Resolved]
  - Diarrhoea [Unknown]
  - Mouth haemorrhage [Unknown]
  - Haematuria [Unknown]

NARRATIVE: CASE EVENT DATE: 202001
